FAERS Safety Report 4452147-1 (Version None)
Quarter: 2004Q3

REPORT INFORMATION
  Report Type: 
  Country: None (occurrence: None)
  Receive Date: 20040914
  Receipt Date: 20040914
  Transmission Date: 20050211
  Serious: Yes (Hospitalization)
  Sender: FDA-Public Use
  Company Number: None

PATIENT
  Age: 78 Year
  Sex: Male
  Weight: 70.5 kg

DRUGS (18)
  1. PREDNISONE 20 MG 20 MG DAILY ORAL COPD [Suspect]
     Dates: start: 20040321, end: 20040331
  2. FERROUS SULFATE TAB [Concomitant]
  3. FUROSEMIDE [Concomitant]
  4. SIMVASTATIN [Concomitant]
  5. TERAZOSIN HCL [Concomitant]
  6. ASPIRIN [Concomitant]
  7. DOCUSATE NA [Concomitant]
  8. LEVOTHYROXINE SODIUM [Concomitant]
  9. NITROGLYCERIN [Concomitant]
  10. TRIAMCINOLONE ACETONIDE [Concomitant]
  11. ALBUTEROL [Concomitant]
  12. IPATROPIUM BROMIDE [Concomitant]
  13. OMEPRAZOLE [Concomitant]
  14. QUETIAPINE FUMARATE [Concomitant]
  15. VITAMIN E [Concomitant]
  16. LEVOFLOXACIN [Concomitant]
  17. AZITHROMYCIN [Concomitant]
  18. METOPROLOL SUCCINATE [Concomitant]

REACTIONS (2)
  - BLOOD GLUCOSE INCREASED [None]
  - CHRONIC OBSTRUCTIVE AIRWAYS DISEASE EXACERBATED [None]
